FAERS Safety Report 6376827-6 (Version None)
Quarter: 2009Q3

REPORT INFORMATION
  Report Type: 
  Country: None (occurrence: None)
  Receive Date: 20090925
  Receipt Date: 20090922
  Transmission Date: 20100115
  Serious: Yes (Hospitalization)
  Sender: FDA-Public Use
  Company Number: HU-BRISTOL-MYERS SQUIBB COMPANY-14789507

PATIENT
  Age: 52 Year
  Sex: Female
  Weight: 52 kg

DRUGS (5)
  1. CARBOPLATIN [Suspect]
     Indication: NON-SMALL CELL LUNG CANCER
     Dosage: 1DF-6AUC CYCLIC
     Route: 042
     Dates: start: 20090312
  2. PACLITAXEL [Suspect]
     Indication: NON-SMALL CELL LUNG CANCER
     Route: 042
     Dates: start: 20090312
  3. BISOPROLOL FUMARATE [Concomitant]
     Dates: start: 20090310
  4. ENOXAPARIN [Concomitant]
     Dates: start: 20090209
  5. AMILORIDE HCL AND HYDROCHLOROTHIAZIDE [Concomitant]
     Dates: start: 20090209

REACTIONS (3)
  - FATIGUE [None]
  - HYPONATRAEMIA [None]
  - NAUSEA [None]
